FAERS Safety Report 22356921 (Version 2)
Quarter: 2023Q2

REPORT INFORMATION
  Report Type: Spontaneous
  Country: HR (occurrence: HR)
  Receive Date: 20230523
  Receipt Date: 20230629
  Transmission Date: 20230721
  Serious: Yes (Other)
  Sender: FDA-Public Use
  Company Number: HR-BAYER-2023A070744

PATIENT
  Age: 66 Year
  Weight: 85 kg

DRUGS (1)
  1. XARELTO [Suspect]
     Active Substance: RIVAROXABAN
     Indication: Product used for unknown indication
     Dosage: RIVAROXABAN (XARELTO) 2X15MG FOR 21 DAYS, AFTER THAT 20MG A DAY
     Route: 048
     Dates: start: 20211223

REACTIONS (1)
  - Deep vein thrombosis [Not Recovered/Not Resolved]
